FAERS Safety Report 8501880-0 (Version None)
Quarter: 2012Q2

REPORT INFORMATION
  Report Type: 
  Country: None (occurrence: None)
  Receive Date: 20120405
  Receipt Date: 20110307
  Transmission Date: 20120825
  Serious: Yes (Other)
  Sender: FDA-Public Use
  Company Number: PHHY2011US19411

PATIENT
  Sex: Female

DRUGS (2)
  1. RECLAST [Suspect]
     Dosage: 5 MG, INTRAVENOUS
     Route: 042
  2. FOSAMAX [Concomitant]

REACTIONS (3)
  - MUSCULOSKELETAL DISCOMFORT [None]
  - TOOTH LOSS [None]
  - OSTEONECROSIS OF JAW [None]
